FAERS Safety Report 25997846 (Version 1)
Quarter: 2025Q4

REPORT INFORMATION
  Report Type: Spontaneous
  Country: JP (occurrence: JP)
  Receive Date: 20251105
  Receipt Date: 20251105
  Transmission Date: 20260118
  Serious: Yes (Other)
  Sender: STRIDES
  Company Number: None

PATIENT
  Age: 54 Year
  Sex: Female

DRUGS (5)
  1. METHOTREXATE [Suspect]
     Active Substance: METHOTREXATE
     Indication: Rheumatoid vasculitis
     Dosage: 80 MILLIGRAM, ONCE A WEEK
     Route: 065
  2. AZATHIOPRINE [Suspect]
     Active Substance: AZATHIOPRINE
     Indication: Rheumatoid vasculitis
     Dosage: 100 MILLIGRAM, QD
     Route: 065
  3. PREDNISOLONE [Suspect]
     Active Substance: PREDNISOLONE
     Indication: Rheumatoid vasculitis
     Dosage: 8 MILLIGRAM, QD
     Route: 065
  4. RITUXIMAB [Suspect]
     Active Substance: RITUXIMAB
     Indication: Rheumatoid vasculitis
     Dosage: 375 MILLIGRAM/SQ. METER
     Route: 065
  5. BUCILLAMINE [Concomitant]
     Active Substance: BUCILLAMINE
     Indication: Rheumatoid vasculitis
     Dosage: UNK
     Route: 065

REACTIONS (8)
  - Skin ulcer [Unknown]
  - Skin ulcer [Unknown]
  - Hypocomplementaemia [Recovered/Resolved]
  - Pancytopenia [Recovered/Resolved]
  - Gangrene [Unknown]
  - Pneumonia viral [Recovered/Resolved]
  - Disseminated varicella zoster virus infection [Recovered/Resolved]
  - Off label use [Unknown]
